FAERS Safety Report 13478566 (Version 1)
Quarter: 2017Q2

REPORT INFORMATION
  Report Type: Spontaneous
  Country: JP (occurrence: JP)
  Receive Date: 20170425
  Receipt Date: 20170425
  Transmission Date: 20170830
  Serious: Yes (Other)
  Sender: FDA-Public Use
  Company Number: JP-MALLINCKRODT-T201701805

PATIENT
  Age: 77 Year
  Sex: Female
  Weight: 41 kg

DRUGS (24)
  1. TAKEPRON [Concomitant]
     Active Substance: LANSOPRAZOLE
     Dosage: 15 MG
     Route: 048
     Dates: end: 20141217
  2. PREDONINE [Concomitant]
     Active Substance: PREDNISOLONE
     Indication: ANALGESIC THERAPY
     Dosage: 10 MG
     Route: 051
     Dates: start: 20141217, end: 20141219
  3. PREDONINE [Concomitant]
     Active Substance: PREDNISOLONE
     Dosage: 20 MG
     Route: 051
     Dates: start: 20141220, end: 20150104
  4. METHADONE [Suspect]
     Active Substance: METHADONE HYDROCHLORIDE
     Dosage: 5 MG, 10 MG DAILY DOSE
     Route: 048
     Dates: start: 20141211, end: 20141217
  5. OXYNORM [Concomitant]
     Active Substance: OXYCODONE HYDROCHLORIDE
     Indication: ANALGESIC THERAPY
     Dosage: 10 MG, PRN
     Route: 048
     Dates: start: 20141128
  6. ROPION [Concomitant]
     Active Substance: FLURBIPROFEN AXETIL
     Indication: ANALGESIC THERAPY
     Dosage: 25 MG, PRN
     Route: 051
     Dates: start: 20141214
  7. KETALAR [Concomitant]
     Active Substance: KETAMINE HYDROCHLORIDE
     Dosage: 400 MG
     Route: 030
     Dates: start: 20141221, end: 20141231
  8. OXIFAST [Concomitant]
     Active Substance: OXYCODONE
     Indication: ANALGESIC THERAPY
     Dosage: 5-10 MG, PRN
     Route: 051
     Dates: start: 20141214
  9. METHADONE [Suspect]
     Active Substance: METHADONE HYDROCHLORIDE
     Indication: CANCER PAIN
     Dosage: 5 MG, 15 MG DAILY DOSE
     Route: 048
     Dates: start: 20141127, end: 20141210
  10. TAKEPRON [Concomitant]
     Active Substance: LANSOPRAZOLE
     Dosage: 60 MG
     Route: 042
     Dates: start: 20141218, end: 20150102
  11. RINDERON V [Concomitant]
     Active Substance: BETAMETHASONE VALERATE
     Dosage: 1 MG
     Route: 048
     Dates: start: 20141211, end: 20141217
  12. RHYTHMY [Concomitant]
     Active Substance: RILMAZAFONE HYDROCHLORIDE
     Dosage: 1 MG
     Route: 048
     Dates: end: 20141215
  13. LAC-B [Concomitant]
     Active Substance: BIFIDOBACTERIUM SPP.
     Dosage: 3 G
     Route: 048
     Dates: start: 20141202, end: 20141217
  14. MORPHINE HYDROCHLORIDE [Concomitant]
     Active Substance: MORPHINE HYDROCHLORIDE
     Indication: ANALGESIC THERAPY
     Dosage: 10 MG
     Route: 051
     Dates: start: 20141221, end: 20150104
  15. MORPHINE HYDROCHLORIDE [Concomitant]
     Active Substance: MORPHINE HYDROCHLORIDE
     Dosage: 50 MG
     Route: 051
     Dates: start: 20141221, end: 20141231
  16. MORPHINE HYDROCHLORIDE [Concomitant]
     Active Substance: MORPHINE HYDROCHLORIDE
     Dosage: 100 MG
     Route: 051
     Dates: start: 20150101, end: 20150104
  17. KETALAR [Concomitant]
     Active Substance: KETAMINE HYDROCHLORIDE
     Indication: ANALGESIC THERAPY
     Dosage: 50 MG
     Route: 042
     Dates: start: 20141217, end: 20141220
  18. OXIFAST [Concomitant]
     Active Substance: OXYCODONE
     Dosage: 50 MG
     Route: 051
     Dates: start: 20141217, end: 20141220
  19. CALONAL [Concomitant]
     Active Substance: ACETAMINOPHEN
     Indication: ANALGESIC THERAPY
     Dosage: 600 MG, PRN
     Route: 048
     Dates: start: 20141128
  20. VOLTAREN [Concomitant]
     Active Substance: DICLOFENAC SODIUM
     Indication: ANALGESIC THERAPY
     Dosage: 25 MG, PRN
     Route: 054
     Dates: start: 20151128
  21. LASIX [Concomitant]
     Active Substance: FUROSEMIDE
     Dosage: 40 MG
     Route: 048
     Dates: end: 20141207
  22. NOVAMIN (PROCHLORPERAZINE) [Concomitant]
     Active Substance: PROCHLORPERAZINE
     Dosage: 5 MG
     Route: 048
     Dates: end: 20141211
  23. RINDERON V [Concomitant]
     Active Substance: BETAMETHASONE VALERATE
     Dosage: 4 MG
     Route: 051
     Dates: start: 20141218, end: 20150102
  24. KETALAR [Concomitant]
     Active Substance: KETAMINE HYDROCHLORIDE
     Dosage: 100 MG
     Route: 042
     Dates: start: 20150101, end: 20150104

REACTIONS (1)
  - Gallbladder perforation [Not Recovered/Not Resolved]

NARRATIVE: CASE EVENT DATE: 20141208
